FAERS Safety Report 6124746-2 (Version None)
Quarter: 2009Q1

REPORT INFORMATION
  Report Type: 
  Country: None (occurrence: None)
  Receive Date: 20090319
  Receipt Date: 20090317
  Transmission Date: 20090719
  Serious: Yes (Hospitalization, Other)
  Sender: FDA-Public Use
  Company Number: US-RB-012113-09

PATIENT
  Sex: Male

DRUGS (4)
  1. SUBOXONE [Suspect]
     Route: 060
     Dates: start: 20080225
  2. XANAX [Concomitant]
     Indication: ANXIETY DISORDER
     Dosage: UNKNOWN DOSE
     Route: 048
  3. LEXAPRO [Concomitant]
     Indication: DEPRESSION
     Dosage: UNKNOWN DOSE
     Route: 048
  4. ZOCOR [Concomitant]
     Dosage: UNKNOWN DOSE
     Route: 048

REACTIONS (2)
  - ANGIOPLASTY [None]
  - PAIN [None]
